FAERS Safety Report 12309682 (Version 2)
Quarter: 2016Q2

REPORT INFORMATION
  Report Type: Spontaneous
  Country: CN (occurrence: CN)
  Receive Date: 20160427
  Receipt Date: 20160606
  Transmission Date: 20160815
  Serious: No
  Sender: FDA-Public Use
  Company Number: CN-JNJFOC-20160422378

PATIENT
  Age: 53 Year
  Sex: Male

DRUGS (1)
  1. DUROGESIC D-TRANS [Suspect]
     Active Substance: FENTANYL
     Indication: ORAL PAIN
     Route: 062
     Dates: start: 20160420

REACTIONS (2)
  - Drug administration error [Unknown]
  - Product quality issue [Unknown]
